FAERS Safety Report 8020039-7 (Version None)
Quarter: 2011Q4

REPORT INFORMATION
  Report Type: 
  Country: None (occurrence: None)
  Receive Date: 20111228
  Receipt Date: 20111219
  Transmission Date: 20120403
  Serious: Yes (Hospitalization)
  Sender: FDA-Public Use
  Company Number: 2011PV000063

PATIENT
  Sex: Male
  Weight: 75 kg

DRUGS (6)
  1. DEXAMETHASONE [Concomitant]
  2. THALIDOMIDE [Concomitant]
  3. CELECOXIB [Concomitant]
  4. DEPOCYT [Suspect]
     Indication: MEDULLOBLASTOMA RECURRENT
     Dosage: 50 MG;QOW;IT
     Route: 037
  5. PREDNISOLONE [Concomitant]
  6. ETOPOSIDE [Concomitant]

REACTIONS (15)
  - CHEST PAIN [None]
  - HYPOAESTHESIA [None]
  - ANXIETY [None]
  - ARACHNOIDITIS [None]
  - C-REACTIVE PROTEIN INCREASED [None]
  - DEAFNESS [None]
  - SOMNOLENCE [None]
  - HEADACHE [None]
  - PYREXIA [None]
  - NEUTROPENIA [None]
  - PARAESTHESIA [None]
  - DYSARTHRIA [None]
  - ATAXIA [None]
  - FALL [None]
  - CONFUSIONAL STATE [None]
